FAERS Safety Report 12213163 (Version 1)
Quarter: 2016Q1

REPORT INFORMATION
  Report Type: Spontaneous
  Country: US (occurrence: US)
  Receive Date: 20160328
  Receipt Date: 20160328
  Transmission Date: 20160526
  Serious: Yes (Other)
  Sender: FDA-Public Use
  Company Number: US-SA-2016SA057367

PATIENT
  Age: 63 Year
  Sex: Female

DRUGS (1)
  1. LUMIZYME [Suspect]
     Active Substance: ALGLUCOSIDASE ALFA
     Route: 041
     Dates: start: 20160304

REACTIONS (2)
  - Muscle twitching [Not Recovered/Not Resolved]
  - Tracheostomy [Unknown]

NARRATIVE: CASE EVENT DATE: 20160304
